FAERS Safety Report 6770864-5 (Version None)
Quarter: 2010Q2

REPORT INFORMATION
  Report Type: 
  Country: None (occurrence: None)
  Receive Date: 20100614
  Receipt Date: 20100601
  Transmission Date: 20101027
  Serious: Yes (Hospitalization)
  Sender: FDA-Public Use
  Company Number: OSCN-NO-1006L-0141

PATIENT
  Age: 61 Year
  Sex: Male

DRUGS (1)
  1. OMNISCAN [Suspect]
     Indication: RENAL TRANSPLANT
     Dosage: 20 ML, SINGLE DOSE,
     Dates: start: 20050501, end: 20050501

REACTIONS (3)
  - RENAL TRANSPLANT [None]
  - SCLEROSING ENCAPSULATING PERITONITIS [None]
  - SUBILEUS [None]
